FAERS Safety Report 19308062 (Version 1)
Quarter: 2021Q2

REPORT INFORMATION
  Report Type: Spontaneous
  Country: US (occurrence: US)
  Receive Date: 20210526
  Receipt Date: 20210526
  Transmission Date: 20210717
  Serious: No
  Sender: FDA-Public Use
  Company Number: None

PATIENT
  Sex: Female

DRUGS (6)
  1. CALCUM [Concomitant]
  2. HUMIRA [Suspect]
     Active Substance: ADALIMUMAB
     Indication: CROHN^S DISEASE
     Dosage: ?          OTHER FREQUENCY:EVERY 14 DAYS;?
     Route: 058
  3. ALPRAZOLAM. [Concomitant]
     Active Substance: ALPRAZOLAM
  4. VITAMIN C [Concomitant]
     Active Substance: ASCORBIC ACID
  5. LAMOTRIGINE. [Concomitant]
     Active Substance: LAMOTRIGINE
  6. PAROXETINE. [Concomitant]
     Active Substance: PAROXETINE

REACTIONS (1)
  - Renal disorder [None]
